FAERS Safety Report 5894070-1 (Version None)
Quarter: 2008Q3

REPORT INFORMATION
  Report Type: 
  Country: None (occurrence: None)
  Receive Date: 20080922
  Receipt Date: 20080915
  Transmission Date: 20090109
  Serious: Yes (Other)
  Sender: FDA-Public Use
  Company Number: CHPA2008US15516

PATIENT
  Sex: Female

DRUGS (2)
  1. EXCEDRIN (MIGRAINE) [Suspect]
     Indication: ARTHRALGIA
     Dosage: 2 DF, ORAL
     Route: 048
  2. ACETAMINOPHEN [Concomitant]

REACTIONS (1)
  - UNEVALUABLE EVENT [None]
